FAERS Safety Report 4744303-X (Version None)
Quarter: 2005Q3

REPORT INFORMATION
  Report Type: 
  Country: None (occurrence: None)
  Receive Date: 20050812
  Receipt Date: 20050413
  Transmission Date: 20060218
  Serious: Yes (Hospitalization, Other)
  Sender: FDA-Public Use
  Company Number: US-MERCK-0504USA02054

PATIENT
  Age: 75 Year
  Sex: Female
  Weight: 91 kg

DRUGS (3)
  1. VIOXX [Suspect]
     Indication: OSTEOPOROSIS
     Route: 048
     Dates: start: 20010101, end: 20030401
  2. METOPROLOL TARTRATE [Concomitant]
     Route: 065
  3. COUMADIN [Concomitant]
     Route: 065

REACTIONS (6)
  - BLOOD CHOLESTEROL INCREASED [None]
  - CORONARY ARTERY DISEASE [None]
  - HYPERTENSION [None]
  - MYOCARDIAL INFARCTION [None]
  - OSTEOARTHRITIS [None]
  - RENAL FAILURE [None]
